FAERS Safety Report 7186351-9 (Version None)
Quarter: 2010Q4

REPORT INFORMATION
  Report Type: 
  Country: None (occurrence: None)
  Receive Date: 20101222
  Receipt Date: 20101217
  Transmission Date: 20110411
  Serious: Yes (Other)
  Sender: FDA-Public Use
  Company Number: US-PFIZER INC-2010175842

PATIENT

DRUGS (1)
  1. ROBITUSSIN COUGH LONG ACTING [Suspect]
     Dosage: UNK

REACTIONS (3)
  - DRUG ABUSE [None]
  - HANGOVER [None]
  - MYDRIASIS [None]
